FAERS Safety Report 5440459-4 (Version None)
Quarter: 2007Q3

REPORT INFORMATION
  Report Type: 
  Country: None (occurrence: None)
  Receive Date: 20070831
  Receipt Date: 20070823
  Transmission Date: 20080115
  Serious: No
  Sender: FDA-Public Use
  Company Number: DE-ELI_LILLY_AND_COMPANY-DE200708005638

PATIENT
  Age: 23 Year
  Sex: Male

DRUGS (1)
  1. CIALIS [Suspect]
     Dosage: 10 MG, ONE-TIME INTAKE
     Dates: start: 20070818

REACTIONS (3)
  - BACK PAIN [None]
  - FLUSHING [None]
  - VISUAL DISTURBANCE [None]
